FAERS Safety Report 25024103 (Version 3)
Quarter: 2025Q3

REPORT INFORMATION
  Report Type: Report from Study
  Country: CN (occurrence: CN)
  Receive Date: 20250228
  Receipt Date: 20250923
  Transmission Date: 20251021
  Serious: Yes (Other)
  Sender: PFIZER
  Company Number: CN-TAKEDA-2023TUS041091

PATIENT
  Age: 38 Year
  Sex: Female
  Weight: 47.5 kg

DRUGS (18)
  1. BRENTUXIMAB VEDOTIN [Suspect]
     Active Substance: BRENTUXIMAB VEDOTIN
     Indication: Hodgkin^s disease nodular sclerosis
     Route: 041
     Dates: start: 20230413
  2. EPIRUBICIN HYDROCHLORIDE [Suspect]
     Active Substance: EPIRUBICIN HYDROCHLORIDE
     Indication: Lymphoma
     Dosage: 52 MILLIGRAM, QD
     Route: 042
     Dates: start: 20230413, end: 20230413
  3. VINDESINE [Suspect]
     Active Substance: VINDESINE
     Indication: Lymphoma
     Dosage: 4 MILLIGRAM, QD
     Route: 042
     Dates: start: 20230413, end: 20230413
  4. DACARBAZINE [Suspect]
     Active Substance: DACARBAZINE
     Indication: Lymphoma
     Dosage: 558 MILLIGRAM, QD
     Route: 042
     Dates: start: 20230413, end: 20230413
  5. GRANULOCYTE COLONY-STIMULATING FACTOR NOS [Suspect]
     Active Substance: GRANULOCYTE COLONY-STIMULATING FACTOR NOS
     Route: 065
  6. TIANQING GAN AN [Concomitant]
     Indication: Prophylaxis
     Dosage: 150 MILLIGRAM, QD
     Route: 048
     Dates: start: 20230411, end: 20230419
  7. PALONOSETRON HYDROCHLORIDE [Concomitant]
     Active Substance: PALONOSETRON HYDROCHLORIDE
     Indication: Antiemetic supportive care
     Dosage: UNK UNK, QD
     Route: 048
     Dates: start: 20230413
  8. ACYCLOVIR [Concomitant]
     Active Substance: ACYCLOVIR
     Indication: Prophylaxis
     Dosage: 0.4 GRAM, BID
     Route: 048
     Dates: start: 20230413
  9. SULFAMETHOXAZOLE [Concomitant]
     Active Substance: SULFAMETHOXAZOLE
     Indication: Antifungal prophylaxis
     Dosage: 0.48 GRAM, QD
     Route: 048
     Dates: start: 20230413
  10. LACTULOSE [Concomitant]
     Active Substance: LACTULOSE
     Indication: Pyrexia
     Dosage: 15 MILLILITER, TID, FORMULATION: SOLUTION (EXCEPT SYRUP)
     Route: 048
     Dates: start: 20230418
  11. CECLOR [Concomitant]
     Active Substance: CEFACLOR
     Indication: Prophylaxis
     Dosage: 375 MILLIGRAM, BID
     Route: 048
     Dates: start: 20230419
  12. CECLOR [Concomitant]
     Active Substance: CEFACLOR
     Indication: Antiinflammatory therapy
  13. FERROUS SUCCINATE [Concomitant]
     Active Substance: FERROUS SUCCINATE
     Indication: Anaemia
     Dosage: 0.2 GRAM, TID
     Route: 048
     Dates: start: 20230419
  14. SODIUM BICARBONATE [Concomitant]
     Active Substance: SODIUM BICARBONATE
     Indication: Alkalinuria
     Route: 042
     Dates: start: 20230413, end: 20230413
  15. VITAMIN C [Concomitant]
     Active Substance: ASCORBIC ACID
     Indication: Mineral supplementation
     Dosage: 100 MILLIGRAM, TID
     Route: 048
     Dates: start: 20230419
  16. HERBALS\DIAMMONIUM GLYCYRRHIZINATE [Concomitant]
     Active Substance: HERBALS\DIAMMONIUM GLYCYRRHIZINATE
     Dosage: 150 MG, 3X/DAY
     Route: 048
     Dates: start: 20230627
  17. CIMETIDINE [Concomitant]
     Active Substance: CIMETIDINE
     Dosage: 0.2 G, 3X/DAY
     Route: 048
     Dates: start: 20230419
  18. OMEPRAZOLE [Concomitant]
     Active Substance: OMEPRAZOLE
     Indication: Prophylaxis
     Route: 048
     Dates: start: 20230630

REACTIONS (4)
  - Neuropathy peripheral [Unknown]
  - Neutrophil count decreased [Recovered/Resolved]
  - COVID-19 [Recovered/Resolved]
  - Off label use [Recovered/Resolved]

NARRATIVE: CASE EVENT DATE: 20230413
